FAERS Safety Report 17886693 (Version 3)
Quarter: 2024Q3

REPORT INFORMATION
  Report Type: Spontaneous
  Country: US (occurrence: US)
  Receive Date: 20200612
  Receipt Date: 20240906
  Transmission Date: 20241017
  Serious: Yes (Hospitalization)
  Sender: TEVA
  Company Number: US-TEVA-2020-US-1247916

PATIENT
  Age: 46 Year
  Sex: Female
  Weight: 92 kg

DRUGS (98)
  1. LOSARTAN [Suspect]
     Active Substance: LOSARTAN\LOSARTAN POTASSIUM
     Indication: Hypertension
     Route: 065
     Dates: start: 20150403, end: 20150424
  2. LOSARTAN [Suspect]
     Active Substance: LOSARTAN\LOSARTAN POTASSIUM
     Indication: Hypertension
     Dosage: TORRENT PHARMACEUTICALS
     Route: 065
     Dates: start: 20160419, end: 20170228
  3. LOSARTAN [Suspect]
     Active Substance: LOSARTAN\LOSARTAN POTASSIUM
     Indication: Hypertension
     Dosage: ACETRIS
     Route: 065
     Dates: start: 20180426, end: 20181019
  4. TRAMADOL [Concomitant]
     Active Substance: TRAMADOL\TRAMADOL HYDROCHLORIDE
     Indication: Pain
     Route: 065
     Dates: start: 200801, end: 2011
  5. TRAMADOL [Concomitant]
     Active Substance: TRAMADOL\TRAMADOL HYDROCHLORIDE
     Indication: Pain
     Route: 065
     Dates: start: 200807, end: 200811
  6. TRAMADOL [Concomitant]
     Active Substance: TRAMADOL\TRAMADOL HYDROCHLORIDE
     Indication: Pain
     Route: 065
     Dates: start: 20130131
  7. CYMBALTA [Concomitant]
     Active Substance: DULOXETINE HYDROCHLORIDE
     Indication: Product used for unknown indication
     Route: 065
     Dates: start: 20010109
  8. OXAPROZIN [Concomitant]
     Active Substance: OXAPROZIN
     Indication: Arthritis
     Route: 065
     Dates: start: 20111003
  9. SAVELLA [Concomitant]
     Active Substance: MILNACIPRAN HYDROCHLORIDE
     Indication: Depression
     Route: 065
  10. NAPROXEN SODIUM [Concomitant]
     Active Substance: NAPROXEN\NAPROXEN SODIUM
     Indication: Pain
     Route: 065
     Dates: start: 201303
  11. NAPROXEN SODIUM [Concomitant]
     Active Substance: NAPROXEN\NAPROXEN SODIUM
     Indication: Pain
     Route: 065
     Dates: start: 201305
  12. NAPROXEN SODIUM [Concomitant]
     Active Substance: NAPROXEN\NAPROXEN SODIUM
     Indication: Pain
     Dosage: TAKE 1 TABLET BY MOUTH EVERY 8 (EIGHT) HOURS AS NEEDED.
     Route: 065
  13. CIPROFLOXACIN [Concomitant]
     Active Substance: CIPROFLOXACIN
     Indication: Bacterial infection
     Route: 065
     Dates: start: 201407
  14. ONDANSETRON [Concomitant]
     Active Substance: ONDANSETRON
     Indication: Nausea
     Route: 065
     Dates: start: 201407
  15. CELEBREX [Concomitant]
     Active Substance: CELECOXIB
     Indication: Pain
     Dosage: DOSAGE TEXT: AS NEEDED
     Route: 048
  16. CELEBREX [Concomitant]
     Active Substance: CELECOXIB
     Indication: Pain
     Dosage: TAKE 200 MG BY MOUTH EVERY 12 (TWELVE) HOURS AS NEEDED.
     Route: 065
     Dates: end: 20200205
  17. NORCO [Concomitant]
     Active Substance: ACETAMINOPHEN\HYDROCODONE BITARTRATE
     Indication: Pain
     Dosage: DOSAGE TEXT: ACETAMINOPHEN 325 MG AND HYDROCODONE 5MG AS NEEDED?TAKE 1 TABLET BY MOUTH EVERY 6 (S...
     Route: 065
     Dates: start: 20160201
  18. ADALAT CC [Concomitant]
     Active Substance: NIFEDIPINE
     Indication: Product used for unknown indication
     Dosage: TAKE 60MG BY MOUTH DAILY.
     Route: 048
  19. LOSARTAN [Suspect]
     Active Substance: LOSARTAN\LOSARTAN POTASSIUM
     Indication: Hypertension
     Dosage: RISING PHARMACEUTICALS
     Route: 065
     Dates: start: 20140502, end: 20140726
  20. LOSARTAN [Suspect]
     Active Substance: LOSARTAN\LOSARTAN POTASSIUM
     Indication: Hypertension
     Route: 065
     Dates: start: 20140729, end: 20150125
  21. LOSARTAN [Suspect]
     Active Substance: LOSARTAN\LOSARTAN POTASSIUM
     Indication: Hypertension
     Route: 065
     Dates: start: 20150128, end: 20150218
  22. LOSARTAN [Suspect]
     Active Substance: LOSARTAN\LOSARTAN POTASSIUM
     Indication: Hypertension
     Route: 065
     Dates: start: 20150221, end: 20150305
  23. LOSARTAN [Suspect]
     Active Substance: LOSARTAN\LOSARTAN POTASSIUM
     Indication: Hypertension
     Route: 065
     Dates: start: 20150305, end: 20150326
  24. LOSARTAN [Suspect]
     Active Substance: LOSARTAN\LOSARTAN POTASSIUM
     Indication: Hypertension
     Route: 065
     Dates: start: 20150403, end: 20150824
  25. LOSARTAN [Suspect]
     Active Substance: LOSARTAN\LOSARTAN POTASSIUM
     Indication: Hypertension
     Route: 065
     Dates: start: 20150824, end: 20151105
  26. LOSARTAN [Suspect]
     Active Substance: LOSARTAN\LOSARTAN POTASSIUM
     Indication: Hypertension
     Route: 065
     Dates: start: 20151110, end: 20151122
  27. LOSARTAN [Suspect]
     Active Substance: LOSARTAN\LOSARTAN POTASSIUM
     Indication: Hypertension
     Route: 065
     Dates: start: 20151125, end: 20160325
  28. PROCARDIA XL [Concomitant]
     Active Substance: NIFEDIPINE
     Indication: Product used for unknown indication
     Dosage: TAKE 60 MG BY MOUTH DAILY
     Route: 065
  29. ULTRAM [Concomitant]
     Active Substance: TRAMADOL HYDROCHLORIDE
     Indication: Product used for unknown indication
     Dosage: TAKE 1 TABLET (50MG TOTAL) BY MOUTH EVERY 6 (SIX) HOURS AS NEEDED FOR UP TO?10 DAYS?30 TABLET?END...
     Route: 065
     Dates: start: 20160201
  30. ZOFRAN [Concomitant]
     Active Substance: ONDANSETRON HYDROCHLORIDE
     Indication: Product used for unknown indication
     Dosage: 4 MG/2 ML INJECTION 4 MG?Q6H PRN
     Route: 042
  31. COZAAR [Concomitant]
     Active Substance: LOSARTAN POTASSIUM
     Indication: Product used for unknown indication
     Dosage: TAKE 25 MG BY MOUTH TWICE DAILY.?END DATE:2020/02/05
     Route: 065
  32. COZAAR [Concomitant]
     Active Substance: LOSARTAN POTASSIUM
     Indication: Product used for unknown indication
     Dosage: TAKE 50 MG BY MOUTH DAILY.?END DATE:2016/03/28
     Route: 065
  33. HYDRODIURIL [Concomitant]
     Active Substance: HYDROCHLOROTHIAZIDE
     Indication: Product used for unknown indication
     Dosage: TAKE 25 MG BY MOUTH DAILY.
     Route: 065
     Dates: start: 20200120
  34. TOPROL XL [Concomitant]
     Active Substance: METOPROLOL SUCCINATE
     Indication: Product used for unknown indication
     Dosage: TAKE 25 MG BY MOUTH DAILY.
     Route: 065
     Dates: start: 20200121
  35. VISIPAQUE [Concomitant]
     Active Substance: IODIXANOL
     Indication: Product used for unknown indication
     Dosage: 320 MG IODINE/ML INJECTION) 1-170 ML?FREQUENCY: ROUTINE ONCE
     Route: 065
  36. VISIPAQUE [Concomitant]
     Active Substance: IODIXANOL
     Indication: Product used for unknown indication
     Dosage: 320 MG IODINE/ML INJECTION 1-170 ML?FREQUENCY: ROUTINE ONCE
     Route: 065
  37. VISIPAQUE [Concomitant]
     Active Substance: IODIXANOL
     Indication: Product used for unknown indication
     Dosage: 320 MG IODINE/ML INJECTION 1-170 ML?DOSE (REMAINING/TOTAL): 1-170 ML (0/1) ?FREQUENCY: ONCE IN IM...
     Route: 042
     Dates: start: 20170422
  38. VISIPAQUE [Concomitant]
     Active Substance: IODIXANOL
     Indication: Product used for unknown indication
     Dosage: 320 MG LODINE/ML INJECTION 1-170 ML?FREQUENCY: ROUTINE ONCE
     Route: 065
  39. VISIPAQUE [Concomitant]
     Active Substance: IODIXANOL
     Indication: Product used for unknown indication
     Dosage: 320 MG IODINE/ML INJECTION 1-170 ML?FREQUENCY: ROUTINE ONCE
     Route: 065
  40. SODIUM CHLORIDE [Concomitant]
     Active Substance: SODIUM CHLORIDE
     Indication: Product used for unknown indication
     Dosage: (NS) 0.9% IV BOLUS 500 ML
     Route: 065
  41. SODIUM CHLORIDE [Concomitant]
     Active Substance: SODIUM CHLORIDE
     Indication: Product used for unknown indication
     Dosage: (NS) 0.9% IV BOLUS 100_ML?FREQUENCY: ROUTINE ONCE
     Route: 065
  42. SODIUM CHLORIDE [Concomitant]
     Active Substance: SODIUM CHLORIDE
     Indication: Product used for unknown indication
     Dosage: (NS) 0.9% IV BOLUS 500ML?FREQUENCY: ROUTINE ONCE
  43. SODIUM CHLORIDE [Concomitant]
     Active Substance: SODIUM CHLORIDE
     Indication: Product used for unknown indication
     Dosage: (NS) 0.9% IV BOLUS 100 ML?ROUTINE ONCE
     Route: 065
  44. SODIUM CHLORIDE [Concomitant]
     Active Substance: SODIUM CHLORIDE
     Indication: Product used for unknown indication
     Dosage: (NS) 0.9% INJECTION FLUSH 10 ML?FREQUENCY: ROUTINE PRN
     Route: 065
  45. SODIUM CHLORIDE [Concomitant]
     Active Substance: SODIUM CHLORIDE
     Indication: Product used for unknown indication
     Dosage: (NS) 0.9% LV BOLUS 500 ML?FREQUENCY. ROUTINE ONCE
     Route: 065
  46. SODIUM CHLORIDE [Concomitant]
     Active Substance: SODIUM CHLORIDE
     Indication: Product used for unknown indication
     Dosage: (NS) 0.9% IV BOLUS 100ML?FREQUENCY: ROUTINE ONCE 12/13/17
     Route: 065
  47. SODIUM CHLORIDE [Concomitant]
     Active Substance: SODIUM CHLORIDE
     Indication: Product used for unknown indication
     Dosage: 0.9% IV BOLUS 500 ML?FREQUENCY: ROUTINE ONCE 01/19/17 1200 - 1 OCCURRENCE
     Route: 065
  48. SODIUM CHLORIDE [Concomitant]
     Active Substance: SODIUM CHLORIDE
     Indication: Product used for unknown indication
     Dosage: 0.9% IV BOLUS 250 ML?FREQUENCY: ROUTINE ONCE 10/08/16 0930 - 1 OCCURRENCE
     Route: 065
  49. SODIUM CHLORIDE [Concomitant]
     Active Substance: SODIUM CHLORIDE
     Indication: Product used for unknown indication
     Dosage: (NS) 0.9% IV BOLUS 500 ML?FREQUENCY: ROUTINE ONCE 10/08/16 0930 - 1 OCCURRENCE
     Route: 065
  50. SODIUM CHLORIDE [Concomitant]
     Active Substance: SODIUM CHLORIDE
     Indication: Product used for unknown indication
     Dosage: (NS) 0.9% IV BOLUS 250 ML?FREQUENCY: ROUTINE ONCE 03/31/16 1100 - 1 OCCURRENCE
     Route: 065
  51. SODIUM CHLORIDE [Concomitant]
     Active Substance: SODIUM CHLORIDE
     Indication: Product used for unknown indication
     Dosage: (NS) 0.9% IV BOLUS_ 500 ML?FREQUENCY: ROUTINE ONCE 03/31/16 1100 - 1 OCCURRENCE
     Route: 065
  52. SODIUM CHLORIDE [Concomitant]
     Active Substance: SODIUM CHLORIDE
     Indication: Product used for unknown indication
     Dosage: 0.9% INJECTION FLUSH 10 ML?FREQUENCY: ROUTINE PRN 04/08/16 0824 - 04/11/16 0310?DISCONTINUED BY: ...
     Route: 065
  53. SODIUM CHLORIDE [Concomitant]
     Active Substance: SODIUM CHLORIDE
     Indication: Product used for unknown indication
     Dosage: 0.9%(NS)?Q8H?CONTINUOUS INFUSIONS:125 ML/HR AT 01 /25/16
     Route: 042
  54. SODIUM CHLORIDE [Concomitant]
     Active Substance: SODIUM CHLORIDE
     Indication: Product used for unknown indication
     Dosage: 0.9%(NS)FLUSH 5ML PRN?0.9%(NS)FLUSH 5ML Q8H?0.9%(NS)FLUSH 5ML PRN?INFUSION CONTINUOUS?0.9% NS 125...
     Route: 042
     Dates: start: 20160126
  55. SODIUM CHLORIDE [Concomitant]
     Active Substance: SODIUM CHLORIDE
     Indication: Product used for unknown indication
     Dosage: 0.9% 5 ML Q8H?0.9% NS 125ML/HR
     Route: 042
     Dates: start: 20160128
  56. SODIUM CHLORIDE [Concomitant]
     Active Substance: SODIUM CHLORIDE
     Indication: Product used for unknown indication
     Dosage: 5ML 0.9% NS Q8H
     Route: 042
     Dates: start: 20160124
  57. SARS-CoV-2 vaccination [Concomitant]
     Indication: COVID-19 immunisation
     Route: 065
  58. OMNIPAQUE [Concomitant]
     Active Substance: IOHEXOL
     Indication: Product used for unknown indication
     Dosage: 350 MG IODINE/ML INJECTION 1-170 ML?FREQUENCY: ROUTINE ONCE
     Route: 065
  59. OMNIPAQUE [Concomitant]
     Active Substance: IOHEXOL
     Indication: Product used for unknown indication
     Dosage: 350 MG IODINE/MLINJECTION FOR ORAL RECTAL USE 1-100 ML?FREQUENCY: ROUTINE ONCE
     Route: 065
  60. OMNIPAQUE [Concomitant]
     Active Substance: IOHEXOL
     Indication: Product used for unknown indication
     Dosage: 350 MG IODINE/ML INJECTION FOR ORAL/RECTAL USE 1-100 ML
     Route: 065
  61. OMNIPAQUE [Concomitant]
     Active Substance: IOHEXOL
     Indication: Product used for unknown indication
     Dosage: 350 MG IODINE/ML INJECTION FOR ORAL/RECTAL USE 40 ML
     Route: 065
  62. OMNIPAQUE [Concomitant]
     Active Substance: IOHEXOL
     Indication: Product used for unknown indication
     Dosage: 350MG LODINE/ML INJECTION 1-170 ML?FREQUENCY: ROUTINE ONCE
     Route: 065
  63. OMNIPAQUE [Concomitant]
     Active Substance: IOHEXOL
     Indication: Product used for unknown indication
     Dosage: 350 MG IODINE/ML INJECTION 1-170 ML?PRN REASONS: CONTRAST?FREQUENCY: ROUTINE ONCE
     Route: 065
  64. OMNIPAQUE [Concomitant]
     Active Substance: IOHEXOL
     Indication: Product used for unknown indication
     Dosage: 240 MG IODINE/ML INJECTION FOR ORAL/RECTAL USE 2-50 ML?PRN COMMENT: 240 MG IODINE/ML INJECTION FO...
     Route: 065
  65. OMNIPAQUE [Concomitant]
     Active Substance: IOHEXOL
     Indication: Product used for unknown indication
     Dosage: 240 MG IODINE/ML INJECTION FOR ORAL/RECTAL USE?FREQUENCY: ROUTINE ONCE
     Route: 065
  66. OMNIPAQUE [Concomitant]
     Active Substance: IOHEXOL
     Indication: Product used for unknown indication
     Dosage: 350 MG IODINE/ML INJECTION 1-170 ML?FREQUENCY: ROUTINE ONCE
     Route: 065
  67. GOLYTELY [Concomitant]
     Active Substance: POLYETHYLENE GLYCOL 3350\POTASSIUM CHLORIDE\SODIUM BICARBONATE\SODIUM CHLORIDE\SODIUM SULFATE
     Indication: Product used for unknown indication
     Dosage: PEG 3350-ELECTROLYTES 236:22.74-6 .74 G SOLUTION
     Route: 065
     Dates: start: 20200131
  68. VOLUMEN [Concomitant]
     Active Substance: BARIUM SULFATE
     Indication: Product used for unknown indication
     Dosage: 0.1 % ORAL SUSPENSION 1~1,350 ML?FREQUENCY: ROUTINE ONCE
  69. VOLUMEN [Concomitant]
     Active Substance: BARIUM SULFATE
     Indication: Product used for unknown indication
     Dosage: 0.1 % ORAL SUSPENSION 1-50 ML?DOSE (REMAINING/TOTAL). 1-50 ML (0/1)?FREQUENCY: ONCE IN IMAGING?EN...
     Route: 048
     Dates: start: 20160408
  70. VOLUMEN [Concomitant]
     Active Substance: BARIUM SULFATE
     Indication: Product used for unknown indication
     Dosage: FREQUENCY: ROUTINE ONCE
     Route: 065
  71. HEPARIN [Concomitant]
     Active Substance: HEPARIN SODIUM
     Indication: Product used for unknown indication
     Dosage: (PF}100 UNITS/ML INJECTION ~200 UNITS?FREQUENCY: ROUTINE ONCE
     Route: 065
  72. HEPARIN [Concomitant]
     Active Substance: HEPARIN SODIUM
     Indication: Product used for unknown indication
     Dosage: 100 UNITS/ML INJECTION 200 UNITS?FREQUENCY: ROUTINE ONCE
     Route: 065
  73. READI-CAT 2 [Concomitant]
     Active Substance: BARIUM SULFATE
     Indication: Product used for unknown indication
     Dosage: 2% SUSPENSION 1-900 ML?FREQUENCY: ROUTINE ONCE
     Route: 065
  74. READI-CAT 2 [Concomitant]
     Active Substance: BARIUM SULFATE
     Indication: Product used for unknown indication
     Dosage: 2% SUSPENSION 1-900 ML?FREQUENCY? ROUTINE ONCE
     Route: 065
  75. TYLENOL [Concomitant]
     Active Substance: ACETAMINOPHEN
     Indication: Product used for unknown indication
     Dosage: Q6H PRN
     Route: 048
     Dates: start: 20160126
  76. APRESOLINE HYDROCHLORIDE [Concomitant]
     Active Substance: HYDRALAZINE HYDROCHLORIDE
     Indication: Product used for unknown indication
     Dosage: Q4H PRN?Q6H SCH
     Route: 042
     Dates: start: 20160126
  77. APRESOLINE HYDROCHLORIDE [Concomitant]
     Active Substance: HYDRALAZINE HYDROCHLORIDE
     Indication: Product used for unknown indication
     Dosage: Q6H SCH
     Route: 042
     Dates: start: 20160127
  78. APRESOLINE HYDROCHLORIDE [Concomitant]
     Active Substance: HYDRALAZINE HYDROCHLORIDE
     Indication: Product used for unknown indication
     Dosage: Q6H SCH
     Route: 042
     Dates: start: 20160129
  79. APRESOLINE HYDROCHLORIDE [Concomitant]
     Active Substance: HYDRALAZINE HYDROCHLORIDE
     Indication: Product used for unknown indication
     Dosage: Q6H SCH
     Route: 042
     Dates: start: 20160130
  80. APRESOLINE HYDROCHLORIDE [Concomitant]
     Active Substance: HYDRALAZINE HYDROCHLORIDE
     Indication: Product used for unknown indication
     Dosage: Q6H SCH
     Route: 042
     Dates: start: 20160131
  81. MORPHINE [Concomitant]
     Active Substance: MORPHINE
     Indication: Product used for unknown indication
     Dosage: Q4H PRN
     Route: 042
     Dates: start: 20160126
  82. VASOTEC [Concomitant]
     Active Substance: ENALAPRIL MALEATE
     Indication: Product used for unknown indication
     Dosage: Q6H SCH
     Route: 042
     Dates: start: 20160125
  83. ENOXAPARIN [Concomitant]
     Active Substance: ENOXAPARIN
     Indication: Product used for unknown indication
     Dosage: Q24H
     Route: 058
     Dates: start: 20160125
  84. ENOXAPARIN [Concomitant]
     Active Substance: ENOXAPARIN
     Indication: Product used for unknown indication
     Dosage: Q24H
     Route: 058
     Dates: start: 20160128
  85. ENOXAPARIN [Concomitant]
     Active Substance: ENOXAPARIN
     Indication: Product used for unknown indication
     Dosage: Q24H
     Route: 058
     Dates: start: 20160129
  86. ENOXAPARIN [Concomitant]
     Active Substance: ENOXAPARIN
     Indication: Product used for unknown indication
     Dosage: Q24H
     Route: 058
     Dates: start: 20160130
  87. ZOFRAN [Concomitant]
     Active Substance: ONDANSETRON HYDROCHLORIDE
     Indication: Product used for unknown indication
     Dosage: 4MG/2ML INJECTION 4MG ?Q6H PRN
     Route: 042
     Dates: start: 20160125
  88. PHENERGAN [Concomitant]
     Active Substance: PROMETHAZINE HYDROCHLORIDE
     Indication: Product used for unknown indication
     Dosage: TABLET(ORAL) OR SUPPOSITORY(RECTAL)OR INJECTION(INTRAMUSCULAR)?Q6H PRN
     Route: 065
  89. ANCEF [Concomitant]
     Active Substance: CEFAZOLIN SODIUM
     Indication: Product used for unknown indication
     Dosage: IVPB 2 G IN DEXTROSE 5% (05W)50ML?PRE-OP
     Route: 042
     Dates: start: 20160127
  90. HYDROMORPHONE [Concomitant]
     Active Substance: HYDROMORPHONE
     Indication: Product used for unknown indication
     Dosage: NS
     Route: 065
  91. MAGNESIUM [Concomitant]
     Active Substance: MAGNESIUM
     Indication: Product used for unknown indication
     Route: 042
     Dates: start: 20160129
  92. POTASSIUM CHLORIDE [Concomitant]
     Active Substance: POTASSIUM CHLORIDE
     Indication: Product used for unknown indication
     Dosage: Q.2H SCH
     Route: 042
  93. XYLOCAINE MPF [Concomitant]
     Active Substance: LIDOCAINE HYDROCHLORIDE
     Indication: Product used for unknown indication
     Dosage: 10 MG/ML (1%)INJECTION 1 ML?FREQUENCY: ROUTINE ONCE
     Route: 065
  94. PLASMALYTE A [Concomitant]
     Indication: Product used for unknown indication
     Dosage: FREQUENCY: ROUTINE ONCE 04/25/20 0015 - 1 OCCURRENCE?ADMIN INSTRUCTIONS. FOR ANESTHESIA PATIENTS,...
     Route: 065
  95. HIBICLENS [Concomitant]
     Active Substance: CHLORHEXIDINE GLUCONATE
     Indication: Product used for unknown indication
     Dosage: ONCE?EXTERNAL LIQUID 4%
     Route: 061
  96. SODIUM PHOSPHATE [Concomitant]
     Active Substance: SODIUM PHOSPHATE
     Indication: Product used for unknown indication
     Dosage: IVPB ONCE
     Route: 042
  97. BISACODYL [Concomitant]
     Active Substance: BISACODYL
     Indication: Product used for unknown indication
     Dosage: RECTAL?ONCE
     Route: 048
  98. OFIRMEV [Concomitant]
     Active Substance: ACETAMINOPHEN
     Indication: Product used for unknown indication
     Dosage: DOSAGE: 10 MG/ML
     Route: 065
     Dates: start: 20160127

REACTIONS (2)
  - Small intestine carcinoma [Unknown]
  - Carcinoid tumour of the small bowel [Unknown]

NARRATIVE: CASE EVENT DATE: 20160123
